FAERS Safety Report 5314941-4 (Version None)
Quarter: 2007Q2

REPORT INFORMATION
  Report Type: 
  Country: None (occurrence: None)
  Receive Date: 20070502
  Receipt Date: 20070419
  Transmission Date: 20071010
  Serious: Yes (Other)
  Sender: FDA-Public Use
  Company Number: CH-ELI_LILLY_AND_COMPANY-CH200704004384

PATIENT
  Sex: Male

DRUGS (2)
  1. CYMBALTA [Suspect]
     Indication: SOCIAL PHOBIA
     Dosage: 30 MG, DAILY (1/D) EACH EVENING
     Route: 048
     Dates: start: 20070331, end: 20070331
  2. ST. JOHN'S WORT [Interacting]
     Indication: SOCIAL PHOBIA
     Dosage: UNK, 3/D
     Route: 048
     Dates: end: 20070329

REACTIONS (7)
  - DIARRHOEA [None]
  - DRUG INTERACTION [None]
  - HEADACHE [None]
  - MYOCLONUS [None]
  - NYSTAGMUS [None]
  - SEROTONIN SYNDROME [None]
  - TREMOR [None]
